FAERS Safety Report 25236432 (Version 2)
Quarter: 2025Q2

REPORT INFORMATION
  Report Type: Report from Study
  Country: US (occurrence: US)
  Receive Date: 20250424
  Receipt Date: 20250428
  Transmission Date: 20250716
  Serious: No
  Sender: ABBVIE
  Company Number: US-ABBVIE-5634467

PATIENT
  Age: 54 Year
  Sex: Male

DRUGS (3)
  1. RINVOQ [Suspect]
     Active Substance: UPADACITINIB
     Indication: Rheumatoid arthritis
     Route: 048
     Dates: start: 20220822
  2. RINVOQ [Suspect]
     Active Substance: UPADACITINIB
     Indication: Rheumatoid arthritis
     Route: 048
     Dates: start: 20220707
  3. COLCHICINE [Concomitant]
     Active Substance: COLCHICINE
     Indication: Blood uric acid increased

REACTIONS (7)
  - Joint effusion [Not Recovered/Not Resolved]
  - Blood uric acid increased [Unknown]
  - Arthralgia [Unknown]
  - Limb injury [Unknown]
  - Joint stiffness [Not Recovered/Not Resolved]
  - Gout [Unknown]
  - Blood uric acid decreased [Unknown]

NARRATIVE: CASE EVENT DATE: 20241001
